FAERS Safety Report 5064731-5 (Version None)
Quarter: 2006Q3

REPORT INFORMATION
  Report Type: 
  Country: None (occurrence: None)
  Receive Date: 20060728
  Receipt Date: 20060725
  Transmission Date: 20061208
  Serious: Yes (Other)
  Sender: FDA-Public Use
  Company Number: IE-SANOFI-SYNTHELABO-A01200605810

PATIENT
  Sex: Male

DRUGS (1)
  1. OXALIPLATIN [Suspect]
     Dosage: UNK
     Route: 042

REACTIONS (4)
  - ASTHENIA [None]
  - NUCHAL RIGIDITY [None]
  - SYNCOPE [None]
  - WHEEZING [None]
